FAERS Safety Report 14672120 (Version 2)
Quarter: 2018Q1

REPORT INFORMATION
  Report Type: Spontaneous
  Country: FR (occurrence: FR)
  Receive Date: 20180323
  Receipt Date: 20180326
  Transmission Date: 20180509
  Serious: Yes (Congenital Anomaly)
  Sender: FDA-Public Use
  Company Number: FR-ABBVIE-18P-056-2292511-00

PATIENT
  Sex: Female

DRUGS (2)
  1. SPECIAFOLDINE [Suspect]
     Active Substance: FOLIC ACID
     Indication: MATERNAL EXPOSURE TIMING UNSPECIFIED
     Route: 064
     Dates: end: 20031113
  2. DEPAKINE [Suspect]
     Active Substance: VALPROATE SODIUM
     Indication: MATERNAL EXPOSURE TIMING UNSPECIFIED
     Route: 064
     Dates: end: 20031113

REACTIONS (5)
  - Intellectual disability [Not Recovered/Not Resolved]
  - Foetal exposure during pregnancy [Unknown]
  - Abnormal behaviour [Unknown]
  - Infantile spasms [Not Recovered/Not Resolved]
  - Scoliosis [Unknown]

NARRATIVE: CASE EVENT DATE: 20040830
